FAERS Safety Report 5511783-1 (Version None)
Quarter: 2007Q4

REPORT INFORMATION
  Report Type: 
  Country: None (occurrence: None)
  Receive Date: 20071109
  Receipt Date: 20071107
  Transmission Date: 20080405
  Serious: Yes (Other)
  Sender: FDA-Public Use
  Company Number: DE-PFIZER INC-2007088595

PATIENT
  Sex: Female

DRUGS (4)
  1. GABAPENTIN [Suspect]
     Indication: NEUROTOXICITY
     Dosage: DAILY DOSE:.5UNK
     Route: 048
  2. CARBOPLATIN [Suspect]
     Indication: CHEMOTHERAPY
     Dosage: DAILY DOSE:500MG
     Route: 042
  3. PACLITAXEL [Suspect]
     Indication: FALLOPIAN TUBE CANCER
     Dosage: DAILY DOSE:300MG
     Route: 042
     Dates: start: 20070620, end: 20071004
  4. RANITIDINE [Concomitant]
     Indication: PROPHYLACTIC CHEMOTHERAPY
     Dates: start: 20070620, end: 20071004

REACTIONS (8)
  - ABDOMINAL PAIN UPPER [None]
  - ARTHRALGIA [None]
  - DYSGEUSIA [None]
  - HYPOAESTHESIA [None]
  - MALAISE [None]
  - MUSCULOSKELETAL DISCOMFORT [None]
  - NAIL DISORDER [None]
  - NEUROTOXICITY [None]
